FAERS Safety Report 13926851 (Version 3)
Quarter: 2018Q1

REPORT INFORMATION
  Report Type: Report from Study
  Country: US (occurrence: US)
  Receive Date: 20170831
  Receipt Date: 20180315
  Transmission Date: 20180508
  Serious: Yes (Hospitalization)
  Sender: FDA-Public Use
  Company Number: US-PFIZER INC-2017234178

PATIENT
  Age: 7 Year
  Sex: Male
  Weight: 29.1 kg

DRUGS (11)
  1. VINCRISTINE SULFATE. [Suspect]
     Active Substance: VINCRISTINE SULFATE
     Dosage: 1.5 MG/M2 DOSE-1.5 MG ON DAYS 1, 15, 29, 43
     Dates: start: 20170622
  2. INCB018424 [Suspect]
     Active Substance: RUXOLITINIB
     Indication: ACUTE LYMPHOCYTIC LEUKAEMIA
     Dosage: 10 MG, 2X/DAY
     Route: 048
     Dates: start: 20170420
  3. INCB018424 [Suspect]
     Active Substance: RUXOLITINIB
     Dosage: 40 MG, BID
     Route: 048
     Dates: start: 20170622
  4. PEGASPARGASE [Suspect]
     Active Substance: PEGASPARGASE
     Indication: ACUTE LYMPHOCYTIC LEUKAEMIA
     Dosage: 2500 IU/M2/DOSE-2450 (IU) DAYS 15 AND 43
     Route: 042
     Dates: start: 20170504
  5. VINCRISTINE SULFATE. [Suspect]
     Active Substance: VINCRISTINE SULFATE
     Indication: ACUTE LYMPHOCYTIC LEUKAEMIA
     Dosage: 1.5 MG/M2 DOSE-1.5 MG ON DAYS 15, 22, 43 AND 50
     Route: 042
     Dates: start: 20170504
  6. CYTARABINE. [Suspect]
     Active Substance: CYTARABINE
     Indication: ACUTE LYMPHOCYTIC LEUKAEMIA
     Dosage: 79 MG DAYS 1-4 AND 8-11, 74 MG DAYS 29-32 AND 36-39
     Route: 058
     Dates: start: 20170420
  7. CYCLOPHOSPHAMIDE. [Suspect]
     Active Substance: CYCLOPHOSPHAMIDE
     Indication: ACUTE LYMPHOCYTIC LEUKAEMIA
     Dosage: 1100 MG, DAY 1 AND 980 MG DAY 29
     Route: 042
     Dates: start: 20170420
  8. MERCAPTOPURINE. [Suspect]
     Active Substance: MERCAPTOPURINE
     Indication: ACUTE LYMPHOCYTIC LEUKAEMIA
     Dosage: 60 MG/M2/DAY (75 MG X4 NIGHTS/WK, 50 MG  X3 NIGHTS/WEEK) DAYS 1-14 AND 29-42
     Dates: start: 20170420
  9. METHOTREXATE SODIUM. [Suspect]
     Active Substance: METHOTREXATE SODIUM
     Indication: ACUTE LYMPHOCYTIC LEUKAEMIA
     Dosage: 12 MG, ON DAYS 1,8,15 AND 22 (HIGH DOSE)
     Route: 037
     Dates: start: 20170420
  10. METHOTREXATE SODIUM. [Suspect]
     Active Substance: METHOTREXATE SODIUM
     Dosage: 12 MG (5000 MG/M2) ON DAYS 1, 15, 29 AND 43
     Route: 037
     Dates: start: 20170622
  11. MERCAPTOPURINE. [Suspect]
     Active Substance: MERCAPTOPURINE
     Dosage: 25 MG/M2/DAY
     Dates: start: 20170622

REACTIONS (6)
  - Gastroenteritis Escherichia coli [Recovered/Resolved]
  - Anaemia [Recovered/Resolved]
  - Pyrexia [Recovered/Resolved]
  - Febrile neutropenia [Recovered/Resolved]
  - Febrile neutropenia [Recovered/Resolved]
  - Pyrexia [Recovered/Resolved]

NARRATIVE: CASE EVENT DATE: 20170504
